FAERS Safety Report 11594758 (Version 1)
Quarter: 2015Q4

REPORT INFORMATION
  Report Type: Report from Study
  Country: US (occurrence: US)
  Receive Date: 20151005
  Receipt Date: 20151005
  Transmission Date: 20160304
  Serious: No
  Sender: FDA-Public Use
  Company Number: US-ABBVIE-15P-163-1365070-00

PATIENT
  Age: 56 Year
  Sex: Female

DRUGS (1)
  1. NORVIR [Suspect]
     Active Substance: RITONAVIR
     Indication: HIV INFECTION
     Route: 048
     Dates: start: 20140501

REACTIONS (1)
  - Tinnitus [Unknown]
